FAERS Safety Report 5004678-3 (Version None)
Quarter: 2006Q2

REPORT INFORMATION
  Report Type: 
  Country: None (occurrence: None)
  Receive Date: 20060517
  Receipt Date: 20060418
  Transmission Date: 20061013
  Serious: Yes (Other)
  Sender: FDA-Public Use
  Company Number: DE-ABBOTT-06P-062-0331289-00

PATIENT
  Age: 83 Year
  Sex: Female
  Weight: 90 kg

DRUGS (10)
  1. AKINETON RETARD TABLETS [Suspect]
     Indication: SUICIDE ATTEMPT
     Route: 048
  2. AKINETON RETARD TABLETS [Suspect]
     Indication: DRUG USE FOR UNKNOWN INDICATION
  3. RISPERIDONE [Suspect]
     Indication: SUICIDE ATTEMPT
     Route: 048
  4. RISPERIDONE [Suspect]
     Indication: DRUG USE FOR UNKNOWN INDICATION
  5. BISOPROLOL [Suspect]
     Indication: SUICIDE ATTEMPT
     Route: 048
  6. BISOPROLOL [Suspect]
     Indication: DRUG USE FOR UNKNOWN INDICATION
  7. RAMIPRIL [Suspect]
     Indication: SUICIDE ATTEMPT
     Route: 048
  8. RAMIPRIL [Suspect]
     Indication: DRUG USE FOR UNKNOWN INDICATION
  9. TIAPRIDE [Suspect]
     Indication: SUICIDE ATTEMPT
     Route: 048
  10. TIAPRIDE [Suspect]
     Indication: DRUG USE FOR UNKNOWN INDICATION

REACTIONS (6)
  - AGITATION [None]
  - BRADYCARDIA [None]
  - OVERDOSE [None]
  - PSYCHOTIC DISORDER [None]
  - SOMNOLENCE [None]
  - SUICIDE ATTEMPT [None]
